FAERS Safety Report 6782672-X (Version None)
Quarter: 2010Q2

REPORT INFORMATION
  Report Type: 
  Country: None (occurrence: None)
  Receive Date: 20100621
  Receipt Date: 20100607
  Transmission Date: 20101027
  Serious: Yes (Other)
  Sender: FDA-Public Use
  Company Number: MX-ELI_LILLY_AND_COMPANY-MX201005006657

PATIENT
  Age: 38 Year
  Sex: Male

DRUGS (1)
  1. CIALIS [Suspect]
     Dosage: 20 MG, AS NEEDED
     Route: 048

REACTIONS (2)
  - ARRHYTHMIA [None]
  - TACHYCARDIA [None]
